FAERS Safety Report 14091874 (Version 1)
Quarter: 2017Q4

REPORT INFORMATION
  Report Type: Spontaneous
  Country: US (occurrence: US)
  Receive Date: 20171016
  Receipt Date: 20171016
  Transmission Date: 20180321
  Serious: Yes (Hospitalization)
  Sender: FDA-Public Use
  Company Number: PHEH2017US032386

PATIENT
  Age: 15 Year
  Sex: Male
  Weight: 81.4 kg

DRUGS (2)
  1. MEKINIST [Suspect]
     Active Substance: TRAMETINIB DIMETHYL SULFOXIDE
     Indication: GLIOMA
     Dosage: 1 MG, QD
     Route: 048
     Dates: start: 20170519
  2. MEKINIST [Suspect]
     Active Substance: TRAMETINIB DIMETHYL SULFOXIDE
     Indication: BRAIN NEOPLASM
     Dosage: 2 MG, QD
     Route: 048
     Dates: start: 20170404

REACTIONS (5)
  - Infection [Unknown]
  - Pruritus [Unknown]
  - Shunt infection [Recovered/Resolved]
  - Rash [Unknown]
  - Shunt occlusion [Unknown]

NARRATIVE: CASE EVENT DATE: 20170705
